FAERS Safety Report 7268950-9 (Version None)
Quarter: 2011Q1

REPORT INFORMATION
  Report Type: 
  Country: None (occurrence: None)
  Receive Date: 20110201
  Receipt Date: 20110124
  Transmission Date: 20110831
  Serious: Yes (Life-Threatening)
  Sender: FDA-Public Use
  Company Number: JP-GENENTECH-304745

PATIENT
  Sex: Male

DRUGS (21)
  1. RITUXAN [Suspect]
     Dosage: 600 MG, UNK
     Route: 042
     Dates: start: 20100607
  2. CYCLOPHOSPHAMIDE [Concomitant]
     Dosage: 1200 MG, SINGLE
     Dates: start: 20100607
  3. DOXORUBICIN HCL [Concomitant]
     Dosage: 80 MG, SINGLE
     Dates: start: 20100412
  4. RITUXAN [Suspect]
     Dosage: 600 MG, UNK
     Route: 042
     Dates: start: 20100510
  5. PREDNISOLONE [Concomitant]
     Dosage: 100 MG, SINGLE
     Dates: start: 20100607
  6. DOXORUBICIN HCL [Concomitant]
     Dosage: 80 MG, SINGLE
     Dates: start: 20100510
  7. PREDNISOLONE [Concomitant]
     Dosage: 100 MG, SINGLE
     Dates: start: 20100412
  8. LOXOPROFEN SODIUM [Concomitant]
     Indication: PROPHYLAXIS
     Dosage: 1 TABLET, SINGLE
     Route: 048
  9. PREDNISOLONE [Concomitant]
     Dosage: 100 MG, SINGLE
     Dates: start: 20100510
  10. RITUXAN [Suspect]
     Dosage: 600 MG, UNK
     Route: 042
     Dates: start: 20100412
  11. CYCLOPHOSPHAMIDE [Concomitant]
     Dosage: 1200 MG, SINGLE
     Dates: start: 20100412
  12. CYCLOPHOSPHAMIDE [Concomitant]
     Dosage: 1200 MG, SINGLE
     Dates: start: 20100510
  13. VINCRISTINE [Concomitant]
     Indication: LYMPHOMA
     Dosage: 2 MG, SINGLE
     Dates: start: 20100323
  14. PREDNISOLONE [Concomitant]
     Indication: LYMPHOMA
     Dosage: 100 MG, SINGLE
     Dates: start: 20100323
  15. VENA [Concomitant]
     Indication: PROPHYLAXIS
     Dosage: 3 TABLET, SINGLE
     Route: 048
  16. CYCLOPHOSPHAMIDE [Concomitant]
     Indication: LYMPHOMA
     Dosage: 1200 MG, SINGLE
     Dates: start: 20100323
  17. VINCRISTINE [Concomitant]
     Dosage: 2 MG, SINGLE
     Dates: start: 20100510
  18. RITUXAN [Suspect]
     Indication: LYMPHOMA
     Dosage: 600 MG, UNK
     Route: 042
     Dates: start: 20100323
  19. DOXORUBICIN HCL [Concomitant]
     Indication: LYMPHOMA
     Dosage: 80 MG, SINGLE
     Dates: start: 20100323
  20. VINCRISTINE [Concomitant]
     Dosage: 2 MG, SINGLE
     Dates: start: 20100412
  21. VINCRISTINE [Concomitant]
     Dosage: 2 MG, SINGLE
     Dates: start: 20100607

REACTIONS (1)
  - PROGRESSIVE MULTIFOCAL LEUKOENCEPHALOPATHY [None]
